FAERS Safety Report 18863988 (Version 1)
Quarter: 2021Q1

REPORT INFORMATION
  Report Type: Spontaneous
  Country: US (occurrence: US)
  Receive Date: 20210208
  Receipt Date: 20210208
  Transmission Date: 20210420
  Serious: Yes (Hospitalization)
  Sender: FDA-Public Use
  Company Number: None

PATIENT
  Sex: Female

DRUGS (10)
  1. ANASTRAZOLE [Concomitant]
     Active Substance: ANASTROZOLE
  2. IBRANCE [Concomitant]
     Active Substance: PALBOCICLIB
  3. NAPROXEN. [Concomitant]
     Active Substance: NAPROXEN
  4. COLACE [Concomitant]
     Active Substance: DOCUSATE SODIUM
  5. LISINOPRIL. [Concomitant]
     Active Substance: LISINOPRIL
  6. CALCIUM VIT D [Concomitant]
     Active Substance: CALCIUM\CHOLECALCIFEROL
  7. VERZENIO [Suspect]
     Active Substance: ABEMACICLIB
     Indication: BREAST CANCER FEMALE
     Route: 048
     Dates: start: 20210116
  8. ROSUVASTATIN. [Concomitant]
     Active Substance: ROSUVASTATIN
  9. ZETIA [Concomitant]
     Active Substance: EZETIMIBE
  10. VITAMIN D [Concomitant]
     Active Substance: VITAMIN D NOS

REACTIONS (2)
  - Dehydration [None]
  - Diarrhoea [None]
